FAERS Safety Report 11725125 (Version 2)
Quarter: 2016Q1

REPORT INFORMATION
  Report Type: Spontaneous
  Country: US (occurrence: US)
  Receive Date: 20151111
  Receipt Date: 20160202
  Transmission Date: 20160525
  Serious: No
  Sender: FDA-Public Use
  Company Number: US-UCBSA-2014021596

PATIENT
  Sex: Female

DRUGS (3)
  1. VIMPAT [Suspect]
     Active Substance: LACOSAMIDE
     Indication: SEIZURE
     Dosage: MG, DAILY
     Route: 048
  2. KEPPRA [Suspect]
     Active Substance: LEVETIRACETAM
     Indication: SEIZURE
     Dosage: MG, DAILY
     Route: 048
  3. LYRICA [Concomitant]
     Active Substance: PREGABALIN
     Indication: HEADACHE
     Dosage: UNK

REACTIONS (3)
  - Seizure [Not Recovered/Not Resolved]
  - Headache [Not Recovered/Not Resolved]
  - Feeling abnormal [Not Recovered/Not Resolved]
